FAERS Safety Report 12315738 (Version 2)
Quarter: 2016Q2

REPORT INFORMATION
  Report Type: Spontaneous
  Country: JP (occurrence: JP)
  Receive Date: 20160428
  Receipt Date: 20160428
  Transmission Date: 20160815
  Serious: Yes (Other)
  Sender: FDA-Public Use
  Company Number: JP-BAXALTA-2015BAX004925

PATIENT
  Age: 63 Year
  Sex: Male

DRUGS (5)
  1. FEIBA [Suspect]
     Active Substance: ANTI-INHIBITOR COAGULANT COMPLEX
     Dosage: 85IU/KG
     Route: 065
  2. CROSS EIGHT M [Suspect]
     Active Substance: ANTIHEMOPHILIC FACTOR HUMAN
     Indication: HAEMATURIA
     Dosage: UNK
     Route: 065
  3. CROSS EIGHT M [Suspect]
     Active Substance: ANTIHEMOPHILIC FACTOR HUMAN
     Dosage: 150IU/KGONCE
     Route: 065
  4. CROSS EIGHT M [Suspect]
     Active Substance: ANTIHEMOPHILIC FACTOR HUMAN
     Dosage: 4IU/KG1X AN HOUR
     Route: 065
  5. FEIBA [Suspect]
     Active Substance: ANTI-INHIBITOR COAGULANT COMPLEX
     Indication: HAEMATURIA
     Dosage: 85IU/KGAS NEEDED
     Route: 065

REACTIONS (1)
  - Haematuria [Not Recovered/Not Resolved]
